FAERS Safety Report 6762351-5 (Version None)
Quarter: 2010Q2

REPORT INFORMATION
  Report Type: 
  Country: None (occurrence: None)
  Receive Date: 20100609
  Receipt Date: 20100609
  Transmission Date: 20101027
  Serious: Yes (Hospitalization)
  Sender: FDA-Public Use
  Company Number: GB-ROCHE-647018

PATIENT
  Sex: Female
  Weight: 70 kg

DRUGS (2)
  1. BEVACIZUMAB [Suspect]
     Dosage: DATE OF MOST RECENT ADMINISTRATION WAS ON 17 JULY 2009
     Route: 042
     Dates: start: 20080905
  2. CARBOPLATIN [Suspect]
     Dosage: DATE OF MOST RECENT DOSE: 19 DECEMBER 2008,GIVEN FOR 6 CYCLES
     Route: 042
     Dates: start: 20080808

REACTIONS (1)
  - INTESTINAL OBSTRUCTION [None]
